FAERS Safety Report 9861190 (Version 2)
Quarter: 2014Q1

REPORT INFORMATION
  Report Type: Spontaneous
  Country: None (occurrence: US)
  Receive Date: 20140202
  Receipt Date: 20140202
  Transmission Date: 20141002
  Serious: No
  Sender: FDA-Public Use
  Company Number: US-ALLERGAN-1303893US

PATIENT
  Age: 83 Year
  Sex: Female

DRUGS (7)
  1. BOTOX [Suspect]
     Indication: INCONTINENCE
     Dosage: UNK, SINGLE
     Route: 030
     Dates: start: 20130306, end: 20130306
  2. AMLODIPINE [Suspect]
     Indication: HYPERTENSION
     Dosage: UNK
     Dates: start: 201302
  3. ATENOLOL [Concomitant]
     Indication: HYPERTENSION
  4. LOVASTATIN [Concomitant]
     Indication: BLOOD CHOLESTEROL
  5. MIRAPEX [Concomitant]
     Indication: RESTLESS LEGS SYNDROME
  6. LOSARTAN [Concomitant]
     Indication: HYPERTENSION
  7. UNSPECIFIED ANTIBIOTIC [Concomitant]
     Indication: URINARY TRACT INFECTION

REACTIONS (3)
  - Oedema peripheral [Unknown]
  - Therapeutic response decreased [Unknown]
  - Urinary tract infection [Unknown]
